FAERS Safety Report 4984659-6 (Version None)
Quarter: 2006Q2

REPORT INFORMATION
  Report Type: 
  Country: None (occurrence: None)
  Receive Date: 20060427
  Receipt Date: 20051018
  Transmission Date: 20061013
  Serious: Yes (Hospitalization)
  Sender: FDA-Public Use
  Company Number: NO-MERCK-0510NOR00049

PATIENT
  Age: 71 Year
  Sex: Male

DRUGS (1)
  1. VIOXX [Suspect]
     Indication: OSTEOARTHRITIS
     Route: 048
     Dates: start: 20031101, end: 20041001

REACTIONS (3)
  - CARPAL TUNNEL SYNDROME [None]
  - DIABETES MELLITUS NON-INSULIN-DEPENDENT [None]
  - MYOCARDIAL INFARCTION [None]
